FAERS Safety Report 20663028 (Version 2)
Quarter: 2022Q2

REPORT INFORMATION
  Report Type: Spontaneous
  Country: JP (occurrence: JP)
  Receive Date: 20220401
  Receipt Date: 20220422
  Transmission Date: 20220720
  Serious: Yes (Other)
  Sender: FDA-Public Use
  Company Number: JP-BEH-2022143398

PATIENT
  Age: 2 Year
  Sex: Male

DRUGS (9)
  1. HUMAN IMMUNOGLOBULIN G [Suspect]
     Active Substance: HUMAN IMMUNOGLOBULIN G
     Indication: Kawasaki^s disease
     Dosage: 2G/KG
     Route: 042
  2. HUMAN IMMUNOGLOBULIN G [Suspect]
     Active Substance: HUMAN IMMUNOGLOBULIN G
     Dosage: 2G/KG, DAY 7
     Route: 042
  3. HUMAN IMMUNOGLOBULIN G [Suspect]
     Active Substance: HUMAN IMMUNOGLOBULIN G
     Dosage: 2G/KG,
     Route: 042
  4. ASPIRIN [Suspect]
     Active Substance: ASPIRIN
     Indication: Kawasaki^s disease
     Dosage: 50 MILLIGRAM/KILOGRAM, QD
     Route: 065
  5. ASPIRIN [Suspect]
     Active Substance: ASPIRIN
     Dosage: 30 MILLIGRAM/KILOGRAM
     Route: 065
  6. PREDNISOLONE [Concomitant]
     Active Substance: PREDNISOLONE
     Indication: Kawasaki^s disease
     Dosage: 2 MILLIGRAM/KILOGRAM, QD
     Route: 065
  7. PREDNISOLONE [Concomitant]
     Active Substance: PREDNISOLONE
     Dosage: DAY 37
     Route: 048
  8. CYCLOSPORINE [Concomitant]
     Active Substance: CYCLOSPORINE
     Indication: Kawasaki^s disease
     Dosage: 3 MILLIGRAM/KILOGRAM, QD
     Route: 042
  9. FLURBIPROFEN [Concomitant]
     Active Substance: FLURBIPROFEN
     Route: 065

REACTIONS (8)
  - Drug reaction with eosinophilia and systemic symptoms [Unknown]
  - Pyrexia [Unknown]
  - Rash [Unknown]
  - Face oedema [Unknown]
  - Eosinophilia [Unknown]
  - Aspartate aminotransferase increased [Unknown]
  - No adverse event [Unknown]
  - Off label use [Unknown]
